FAERS Safety Report 7030405-4 (Version None)
Quarter: 2010Q4

REPORT INFORMATION
  Report Type: 
  Country: None (occurrence: None)
  Receive Date: 20101006
  Receipt Date: 20100930
  Transmission Date: 20110411
  Serious: Yes (Other)
  Sender: FDA-Public Use
  Company Number: BR-SANOFI-AVENTIS-2010SA059035

PATIENT
  Sex: Male
  Weight: 78 kg

DRUGS (8)
  1. LANTUS [Suspect]
     Indication: TYPE 1 DIABETES MELLITUS
     Route: 058
     Dates: start: 20030101
  2. HUMALOG [Concomitant]
     Indication: TYPE 1 DIABETES MELLITUS
     Dosage: ACCORDING TO CARBOHYDRATE COUNTING
     Route: 058
  3. ALL OTHER THERAPEUTIC PRODUCTS [Concomitant]
     Indication: EYE DISORDER
     Route: 061
     Dates: start: 20100923
  4. ATENOLOL [Concomitant]
     Indication: EYE DISORDER
     Route: 061
     Dates: start: 20100923
  5. VIGAMOX [Concomitant]
     Indication: EYE DISORDER
     Route: 061
     Dates: start: 20100923
  6. ALL OTHER THERAPEUTIC PRODUCTS [Concomitant]
     Route: 061
     Dates: start: 20100923
  7. PARACETAMOL [Concomitant]
     Indication: PAIN
     Route: 048
     Dates: start: 20100923
  8. ALL OTHER THERAPEUTIC PRODUCTS [Concomitant]
     Route: 061
     Dates: start: 20100923

REACTIONS (6)
  - BLINDNESS UNILATERAL [None]
  - HYPERGLYCAEMIA [None]
  - INTRAOCULAR PRESSURE INCREASED [None]
  - MEDICATION ERROR [None]
  - THIRST [None]
  - VISUAL ACUITY REDUCED [None]
